FAERS Safety Report 5043220-8 (Version None)
Quarter: 2006Q3

REPORT INFORMATION
  Report Type: 
  Country: None (occurrence: None)
  Receive Date: 20060705
  Receipt Date: 20051212
  Transmission Date: 20061208
  Serious: Yes (Hospitalization)
  Sender: FDA-Public Use
  Company Number: DE-BRISTOL-MYERS SQUIBB COMPANY-13221395

PATIENT
  Age: 67 Year
  Sex: Male

DRUGS (7)
  1. ERBITUX [Suspect]
     Indication: NON-SMALL CELL LUNG CANCER
     Dosage: FIRST INFUSION.
     Route: 041
     Dates: start: 20051212, end: 20051212
  2. VINORELBINE [Suspect]
     Indication: NON-SMALL CELL LUNG CANCER
     Dosage: FIRST INFUSION.
     Route: 042
     Dates: start: 20051212, end: 20051212
  3. ALLOPURINOL [Concomitant]
  4. SIMVASTATIN [Concomitant]
  5. TIOTROPIUM BROMIDE [Concomitant]
  6. PANTOPRAZOLE [Concomitant]
  7. NOREPINEPHRINE [Concomitant]

REACTIONS (1)
  - ARRHYTHMIA SUPRAVENTRICULAR [None]
